FAERS Safety Report 7693600-7 (Version None)
Quarter: 2011Q3

REPORT INFORMATION
  Report Type: 
  Country: None (occurrence: None)
  Receive Date: 20110819
  Receipt Date: 20110810
  Transmission Date: 20111222
  Serious: Yes (Hospitalization, Other)
  Sender: FDA-Public Use
  Company Number: CA-US-EMD SERONO, INC.-7076442

PATIENT
  Sex: Female

DRUGS (9)
  1. WARFARIN SODIUM [Concomitant]
     Route: 048
  2. DILANTIN [Concomitant]
     Route: 048
  3. TEGRETOL [Concomitant]
     Route: 048
  4. OXYBUTYNIN [Concomitant]
     Route: 048
  5. REBIF [Suspect]
     Indication: RELAPSING-REMITTING MULTIPLE SCLEROSIS
     Route: 058
     Dates: start: 20030207, end: 20090220
  6. BACLOFEN [Concomitant]
     Route: 048
  7. REBIF [Suspect]
     Route: 058
     Dates: start: 20090223, end: 20110330
  8. SOFLAX [Concomitant]
     Route: 048
  9. CLOBAZAM [Concomitant]
     Route: 048

REACTIONS (2)
  - COLON CANCER [None]
  - MULTIPLE SCLEROSIS RELAPSE [None]
